FAERS Safety Report 24651666 (Version 1)
Quarter: 2024Q4

REPORT INFORMATION
  Report Type: Spontaneous
  Country: US (occurrence: US)
  Receive Date: 20241122
  Receipt Date: 20241122
  Transmission Date: 20250115
  Serious: No
  Sender: BRISTOL-MYERS SQUIBB COMPANY
  Company Number: US-BRISTOL-MYERS SQUIBB COMPANY-2024-181877

PATIENT
  Age: 96 Year
  Sex: Female

DRUGS (2)
  1. REVLIMID [Suspect]
     Active Substance: LENALIDOMIDE
     Indication: Diffuse large B-cell lymphoma
     Route: 048
     Dates: start: 202401
  2. IMBRUVICA [Concomitant]
     Active Substance: IBRUTINIB
     Indication: Blood pressure measurement

REACTIONS (2)
  - Blood pressure systolic increased [Unknown]
  - Off label use [Unknown]
